FAERS Safety Report 23735763 (Version 1)
Quarter: 2024Q2

REPORT INFORMATION
  Report Type: Spontaneous
  Country: DE (occurrence: DE)
  Receive Date: 20240412
  Receipt Date: 20240412
  Transmission Date: 20240715
  Serious: Yes (Hospitalization, Other)
  Sender: FDA-Public Use
  Company Number: None

PATIENT
  Age: 27 Year
  Sex: Male
  Weight: 65 kg

DRUGS (1)
  1. ROSUVASTATIN CALCIUM [Suspect]
     Active Substance: ROSUVASTATIN CALCIUM
     Indication: Type IIa hyperlipidaemia
     Dosage: 10MG 1X DAILY
     Dates: start: 20230501, end: 20230630

REACTIONS (6)
  - Ulnar nerve injury [Not Recovered/Not Resolved]
  - Burning sensation [Not Recovered/Not Resolved]
  - Hyperaesthesia [Not Recovered/Not Resolved]
  - Peripheral sensory neuropathy [Not Recovered/Not Resolved]
  - Dysaesthesia [Not Recovered/Not Resolved]
  - Demyelinating polyneuropathy [Not Recovered/Not Resolved]

NARRATIVE: CASE EVENT DATE: 20230701
